FAERS Safety Report 4623730-5 (Version None)
Quarter: 2005Q1

REPORT INFORMATION
  Report Type: 
  Country: None (occurrence: None)
  Receive Date: 20050331
  Receipt Date: 20050321
  Transmission Date: 20050727
  Serious: Yes (Death, Hospitalization)
  Sender: FDA-Public Use
  Company Number: JP-BRISTOL-MYERS SQUIBB COMPANY-12904892

PATIENT
  Age: 69 Year
  Sex: Male
  Weight: 54 kg

DRUGS (5)
  1. WARFARIN SODIUM [Suspect]
     Indication: PULMONARY EMBOLISM
  2. HEPARIN [Suspect]
  3. ANTITHROMBIN III [Concomitant]
  4. UROKINASE [Concomitant]
  5. MICAFUNGIN SODIUM [Concomitant]

REACTIONS (5)
  - HAEMATURIA [None]
  - HAEMOPTYSIS [None]
  - HAEMORRHAGE [None]
  - MULTI-ORGAN DISORDER [None]
  - RESPIRATORY FAILURE [None]
